FAERS Safety Report 26197187 (Version 1)
Quarter: 2025Q4

REPORT INFORMATION
  Report Type: Spontaneous
  Country: EU (occurrence: EU)
  Receive Date: 20251224
  Receipt Date: 20251224
  Transmission Date: 20260117
  Serious: Yes (Other)
  Sender: ASCENDIS PHARMA
  Company Number: EU-ASCENDIS PHARMA-2025EU009394

PATIENT

DRUGS (1)
  1. YORVIPATH [Suspect]
     Active Substance: PALOPEGTERIPARATIDE
     Indication: Post procedural hypoparathyroidism
     Dosage: UNK, QD
     Route: 058

REACTIONS (1)
  - Compression fracture [Unknown]
